FAERS Safety Report 23866249 (Version 2)
Quarter: 2024Q2

REPORT INFORMATION
  Report Type: Spontaneous
  Country: IT (occurrence: IT)
  Receive Date: 20240517
  Receipt Date: 20240522
  Transmission Date: 20240716
  Serious: Yes (Death, Other)
  Sender: FDA-Public Use
  Company Number: IT-RDY-LIT/ITA/24/0006691

PATIENT
  Age: 49 Year
  Sex: Female

DRUGS (2)
  1. AZACITIDINE [Suspect]
     Active Substance: AZACITIDINE
     Indication: Acute myeloid leukaemia
     Dosage: 75 MILLIGRAM/SQ. METER (75?MG/M2 FOR 5-7?DAYS; 2 CYCLES)
     Route: 058
  2. VENETOCLAX [Suspect]
     Active Substance: VENETOCLAX
     Indication: Acute myeloid leukaemia
     Dosage: 400 MILLIGRAM, ONCE A DAY (400?MG/DAY FOR 14-28?DAYS; 2 CYCLES)
     Route: 048

REACTIONS (2)
  - Bronchopulmonary aspergillosis [Fatal]
  - Product use issue [Unknown]
